FAERS Safety Report 25592174 (Version 1)
Quarter: 2025Q3

REPORT INFORMATION
  Report Type: Spontaneous
  Country: US (occurrence: US)
  Receive Date: 20250722
  Receipt Date: 20250722
  Transmission Date: 20251020
  Serious: Yes (Other)
  Sender: JOHNSON AND JOHNSON
  Company Number: US-JNJFOC-20250715259

PATIENT

DRUGS (1)
  1. CARVYKTI [Suspect]
     Active Substance: CILTACABTAGENE AUTOLEUCEL
     Indication: Plasma cell myeloma refractory
     Route: 065

REACTIONS (54)
  - Cytokine release syndrome [Unknown]
  - Immune effector cell-associated neurotoxicity syndrome [Unknown]
  - Cytopenia [Unknown]
  - Immune effector cell-associated haematotoxicity [Unknown]
  - Bell^s palsy [Unknown]
  - Polyneuropathy [Unknown]
  - Immune effector cell-associated HLH-like syndrome [Unknown]
  - Neutropenia [Unknown]
  - Thrombocytopenia [Unknown]
  - Pneumonia bacterial [Unknown]
  - Clostridium difficile colitis [Unknown]
  - Staphylococcal bacteraemia [Unknown]
  - Pneumonia staphylococcal [Unknown]
  - Enterococcal infection [Unknown]
  - Cytomegalovirus viraemia [Unknown]
  - Fungaemia [Unknown]
  - Mucormycosis [Unknown]
  - Perirectal abscess [Unknown]
  - Pseudomonas infection [Unknown]
  - Pneumonia pseudomonal [Unknown]
  - Streptococcal bacteraemia [Unknown]
  - Gastroenteritis Escherichia coli [Unknown]
  - Gastroenteritis norovirus [Unknown]
  - Pneumonia haemophilus [Unknown]
  - Metapneumovirus pneumonia [Unknown]
  - Enterocolitis [Unknown]
  - Gastroenteritis astroviral [Unknown]
  - Pneumonia klebsiella [Unknown]
  - Klebsiella bacteraemia [Unknown]
  - Posterior reversible encephalopathy syndrome [Unknown]
  - Burkholderia infection [Unknown]
  - Periodontitis [Unknown]
  - Parkinsonism [Unknown]
  - Anaemia [Unknown]
  - Platelet count decreased [Unknown]
  - Toxicity to various agents [Unknown]
  - Abscess bacterial [Unknown]
  - Staphylococcal infection [Unknown]
  - COVID-19 [Unknown]
  - Parainfluenzae virus infection [Unknown]
  - Enterovirus infection [Unknown]
  - Respiratory syncytial virus infection [Unknown]
  - Candida infection [Unknown]
  - Bronchitis bacterial [Unknown]
  - Folliculitis [Unknown]
  - Upper respiratory tract infection bacterial [Unknown]
  - Rhinovirus infection [Unknown]
  - Varicella zoster virus infection [Unknown]
  - Cellulitis [Unknown]
  - Cystitis bacterial [Unknown]
  - Sinusitis bacterial [Unknown]
  - Otitis media [Unknown]
  - Adenovirus infection [Unknown]
  - Influenza [Unknown]
